FAERS Safety Report 4337394-1 (Version None)
Quarter: 2004Q2

REPORT INFORMATION
  Report Type: 
  Country: None (occurrence: None)
  Receive Date: 20040408
  Receipt Date: 20040326
  Transmission Date: 20050107
  Serious: Yes (Other)
  Sender: FDA-Public Use
  Company Number: 2004021473

PATIENT
  Age: 66 Year
  Sex: Male

DRUGS (7)
  1. GABAPENTIN [Suspect]
     Indication: ANALGESIC EFFECT
     Dosage: 300 MG (DAILY), ORAL
     Route: 048
     Dates: end: 20040315
  2. WARFARIN SODIUM [Suspect]
     Indication: ILL-DEFINED DISORDER
  3. NITROGLYCERIN [Concomitant]
  4. FEXOFENADINE HCL [Concomitant]
  5. BECLOMETHASONE DIPROPIONATE [Concomitant]
  6. SALBUTAMOL (SALBUTAMOL) [Concomitant]
  7. DOXAZOSIN MESLYLATE [Concomitant]

REACTIONS (3)
  - DRUG EFFECT DECREASED [None]
  - DRUG INTERACTION [None]
  - INTERNATIONAL NORMALISED RATIO DECREASED [None]
